FAERS Safety Report 18167974 (Version 3)
Quarter: 2020Q4

REPORT INFORMATION
  Report Type: Report from Study
  Country: US (occurrence: US)
  Receive Date: 20200818
  Receipt Date: 20201023
  Transmission Date: 20210113
  Serious: Yes (Life-Threatening, Hospitalization)
  Sender: FDA-Public Use
  Company Number: US-009507513-2008USA007585

PATIENT
  Age: 41 Year
  Sex: Female
  Weight: 81.6 kg

DRUGS (29)
  1. BLINATUMOMAB [Suspect]
     Active Substance: BLINATUMOMAB
     Indication: DIFFUSE LARGE B-CELL LYMPHOMA
     Dosage: UNK UNK, QD
     Route: 042
     Dates: start: 20200716, end: 20200802
  2. VANCOMYCIN [Concomitant]
     Active Substance: VANCOMYCIN
     Indication: CYTOKINE RELEASE SYNDROME
     Dosage: 1000-1500 MILLIGRAM
     Route: 042
     Dates: start: 20200717, end: 20200805
  3. TRAMADOL HYDROCHLORIDE. [Concomitant]
     Active Substance: TRAMADOL HYDROCHLORIDE
     Dosage: 50 MILLIGRAM
     Dates: start: 20200715, end: 20200718
  4. ONDANSETRON [Concomitant]
     Active Substance: ONDANSETRON
     Dosage: 4 MILLIGRAM
     Route: 042
     Dates: start: 20190418, end: 20200828
  5. FENTANYL. [Concomitant]
     Active Substance: FENTANYL
     Dosage: 50 MILLIGRAM
     Route: 042
     Dates: start: 20200715, end: 20200715
  6. HYDROMORPHONE [Concomitant]
     Active Substance: HYDROMORPHONE
     Dosage: 1 MILLILITER
     Route: 042
     Dates: start: 20200716, end: 20200719
  7. ACETAMINOPHEN. [Concomitant]
     Active Substance: ACETAMINOPHEN
     Dosage: 650 MILLIGRAM
     Route: 048
     Dates: start: 20200717
  8. NITROFURANTOIN. [Concomitant]
     Active Substance: NITROFURANTOIN
     Dosage: 100 MILLIGRAM
     Route: 048
     Dates: start: 20200727, end: 20200801
  9. POTASSIUM PHOSPHATE, DIBASIC (+) POTASSIUM PHOSPHATE, MONOBASIC [Concomitant]
     Dosage: 10 MILLIEQUIVALENT
     Route: 042
     Dates: start: 20200717
  10. TRAZODONE HYDROCHLORIDE. [Concomitant]
     Active Substance: TRAZODONE HYDROCHLORIDE
     Dosage: 25 MILLIGRAM
     Route: 048
     Dates: start: 20200731, end: 20200731
  11. MIDAZOLAM. [Concomitant]
     Active Substance: MIDAZOLAM
     Dosage: 1 MILLIGRAM
     Route: 042
     Dates: start: 20200715, end: 20200715
  12. MELATONIN [Concomitant]
     Active Substance: MELATONIN
     Dosage: 5 MILLIGRAM
     Route: 048
     Dates: start: 20200730
  13. BLINATUMOMAB [Suspect]
     Active Substance: BLINATUMOMAB
     Dosage: UNK
     Dates: start: 20200807
  14. LIDOCAINE. [Concomitant]
     Active Substance: LIDOCAINE
     Dosage: 5 MILLILITER
     Route: 042
     Dates: start: 20200715, end: 20200715
  15. LORATADINE. [Concomitant]
     Active Substance: LORATADINE
     Dosage: 10 MILLILITER
     Route: 048
     Dates: start: 20200716, end: 20200801
  16. HYDROXYZINE HYDROCHLORIDE. [Concomitant]
     Active Substance: HYDROXYZINE HYDROCHLORIDE
     Dosage: 25 MILLIGRAM
     Route: 048
     Dates: start: 20200730, end: 20200730
  17. OXYCODONE [Concomitant]
     Active Substance: OXYCODONE
     Dosage: 5-10 MILLIGRAM
     Route: 048
     Dates: start: 20200715, end: 20200719
  18. DEXAMETHASONE. [Suspect]
     Active Substance: DEXAMETHASONE
     Indication: NEUROTOXICITY
     Dosage: 20 MILLIGRAM
     Route: 065
     Dates: start: 20200716
  19. PIPERACILLIN AND TAZOBACTAM [Concomitant]
     Active Substance: PIPERACILLIN SODIUM\TAZOBACTAM SODIUM
     Dosage: 3375 MILLIGRAM
     Route: 042
     Dates: start: 20200717, end: 20200806
  20. LORAZEPAM. [Concomitant]
     Active Substance: LORAZEPAM
     Dosage: 1 MILLILITER
     Route: 048
     Dates: start: 20200716, end: 20200719
  21. COMPAZINE [Concomitant]
     Active Substance: PROCHLORPERAZINE MALEATE
     Dosage: 10 MILLIGRAM
     Route: 042
     Dates: start: 20200717, end: 20200718
  22. FILGRASTIM-SNDZ [Concomitant]
     Active Substance: FILGRASTIM-SNDZ
     Dosage: 300 MILLILITER
     Route: 058
     Dates: start: 20200719
  23. ACYCLOVIR. [Concomitant]
     Active Substance: ACYCLOVIR
     Indication: CYTOKINE RELEASE SYNDROME
     Dosage: 70-400 MILLIGRAM
     Dates: start: 20190422, end: 20200804
  24. DOCUSATE SODIUM. [Concomitant]
     Active Substance: DOCUSATE SODIUM
     Dosage: 250 MILLIGRAM
     Dates: start: 20190419
  25. PROCHLORPERAZINE. [Concomitant]
     Active Substance: PROCHLORPERAZINE
     Dosage: 10 MILLIGRAM
     Route: 048
     Dates: start: 20190408
  26. SENNOSIDES. [Concomitant]
     Active Substance: SENNOSIDES
     Dosage: 17.2-17.6 MILLIGRAM
     Dates: start: 20190419, end: 20200807
  27. LACTATED RINGERS SOLUTION FUSO [Concomitant]
     Dosage: 1000 MILLIGRAM
     Route: 042
     Dates: start: 20200717, end: 20200717
  28. FLUCONAZOLE. [Concomitant]
     Active Substance: FLUCONAZOLE
     Dosage: 400 MILLIGRAM
     Route: 048
     Dates: start: 20200715
  29. LEVOFLOXACIN. [Concomitant]
     Active Substance: LEVOFLOXACIN
     Dosage: 500 MILLIGRAM
     Route: 048
     Dates: start: 20200715

REACTIONS (3)
  - Vomiting [Recovered/Resolved]
  - Neurotoxicity [Recovered/Resolved]
  - Cytokine release syndrome [Not Recovered/Not Resolved]

NARRATIVE: CASE EVENT DATE: 20200802
